FAERS Safety Report 8552798-9 (Version None)
Quarter: 2012Q3

REPORT INFORMATION
  Report Type: 
  Country: None (occurrence: None)
  Receive Date: 20120719
  Receipt Date: 20120118
  Transmission Date: 20120928
  Serious: Yes (Hospitalization, Disabling)
  Sender: FDA-Public Use
  Company Number: NES-AE-12-002

PATIENT
  Age: 44 Year
  Sex: Male

DRUGS (27)
  1. AVANDIA [Concomitant]
     Indication: PAIN MANAGEMENT
  2. INDOMETHACIN [Concomitant]
  3. LIPITOR [Concomitant]
  4. AMITRIPTYLINE HCL [Concomitant]
  5. NEURONTIN [Concomitant]
  6. NEXIUM [Concomitant]
  7. DIAZEPAM [Concomitant]
  8. FLEXERIL [Concomitant]
  9. VARENICLINE [Concomitant]
  10. TRAMADOL HCL [Concomitant]
  11. COREG [Concomitant]
  12. ROPINIROLE [Concomitant]
  13. MORPHINE SULFATE INJ [Suspect]
     Indication: PAIN MANAGEMENT
  14. PERCOCET [Suspect]
     Dosage: UNK
  15. OXAZEPAM [Concomitant]
  16. PREVACID [Concomitant]
  17. ACTOS [Concomitant]
  18. ZANTAC [Concomitant]
  19. ZYLOPRIM [Concomitant]
  20. CIALIS [Concomitant]
  21. AMOXICILLIN AND CLAVULANATE POTASSIUM [Concomitant]
  22. LOVENOX [Concomitant]
  23. ROXICODONE [Suspect]
     Dosage: UNK
  24. GLIPIZIDE [Concomitant]
  25. METFORMIN HCL [Concomitant]
  26. OXYCONTIN [Suspect]
     Dosage: UNK
  27. LISINOPRIL [Concomitant]

REACTIONS (19)
  - HYPONATRAEMIA [None]
  - DEFORMITY [None]
  - CONFUSIONAL STATE [None]
  - HYPERKALAEMIA [None]
  - RENAL FAILURE ACUTE [None]
  - ACCIDENTAL OVERDOSE [None]
  - OVERDOSE [None]
  - UNRESPONSIVE TO STIMULI [None]
  - BACK PAIN [None]
  - MEMORY IMPAIRMENT [None]
  - PULMONARY EMBOLISM [None]
  - LETHARGY [None]
  - MENTAL STATUS CHANGES [None]
  - DYSARTHRIA [None]
  - ANXIETY [None]
  - DISORIENTATION [None]
  - RHABDOMYOLYSIS [None]
  - APPARENT DEATH [None]
  - PAIN [None]
